FAERS Safety Report 5252911-5 (Version None)
Quarter: 2007Q1

REPORT INFORMATION
  Report Type: 
  Country: None (occurrence: None)
  Receive Date: 20070227
  Receipt Date: 20070213
  Transmission Date: 20070707
  Serious: Yes (Hospitalization, Other)
  Sender: FDA-Public Use
  Company Number: SP-2007-003457

PATIENT
  Age: 83 Year
  Sex: Female
  Weight: 70 kg

DRUGS (8)
  1. OLMESARTAN MEDOXOMIL AND HYDROCHLOROTHIZIDE [Suspect]
     Indication: HYPERTENSION
     Dosage: 20/25MG
     Dates: start: 20060601, end: 20061004
  2. ATENOLOL [Suspect]
     Indication: HYPERTENSION
     Dosage: 50 MG QD PO
     Route: 048
     Dates: start: 19960101
  3. ACETYL-DL-LEUCINE [Concomitant]
  4. SERETIDE [Concomitant]
  5. LYSINE ACETYLSALICYLATE [Concomitant]
  6. TRIAMCINOLONE [Concomitant]
  7. CARBOCYSTEINE [Concomitant]
  8. LORAZEPAM [Concomitant]

REACTIONS (9)
  - CEREBRAL ATROPHY [None]
  - DYSPNOEA [None]
  - FALL [None]
  - HYPERCALCAEMIA [None]
  - INCONTINENCE [None]
  - LUNG INFECTION [None]
  - MALAISE [None]
  - TRANSIENT ISCHAEMIC ATTACK [None]
  - VOMITING [None]
